FAERS Safety Report 10533252 (Version 1)
Quarter: 2014Q4

REPORT INFORMATION
  Report Type: Spontaneous
  Country: US (occurrence: None)
  Receive Date: 20141021
  Receipt Date: 20141021
  Transmission Date: 20150529
  Serious: Yes (Death)
  Sender: FDA-Public Use
  Company Number: None

PATIENT
  Age: 82 Year
  Sex: Male
  Weight: 81.65 kg

DRUGS (7)
  1. AMIODARONE [Concomitant]
     Active Substance: AMIODARONE
  2. HYDROCODONE [Concomitant]
     Active Substance: HYDROCODONE
  3. XARELTO [Suspect]
     Active Substance: RIVAROXABAN
     Indication: POST PROCEDURAL COMPLICATION
     Dosage: 1 PILL QD ORAL
     Route: 048
     Dates: start: 20140902, end: 20141006
  4. MIRALAX [Concomitant]
     Active Substance: POLYETHYLENE GLYCOL 3350
  5. TRAMADOL [Concomitant]
     Active Substance: TRAMADOL
  6. DOCUSATE [Concomitant]
     Active Substance: DOCUSATE
  7. XARELTO [Suspect]
     Active Substance: RIVAROXABAN
     Indication: EMBOLISM VENOUS
     Dosage: 1 PILL QD ORAL
     Route: 048
     Dates: start: 20140902, end: 20141006

REACTIONS (2)
  - Haemorrhage intracranial [None]
  - Brain midline shift [None]

NARRATIVE: CASE EVENT DATE: 20141007
